FAERS Safety Report 4851958-8 (Version None)
Quarter: 2005Q4

REPORT INFORMATION
  Report Type: 
  Country: None (occurrence: None)
  Receive Date: 20051209
  Receipt Date: 20051123
  Transmission Date: 20060501
  Serious: Yes (Other)
  Sender: FDA-Public Use
  Company Number: 8013666

PATIENT
  Age: 13 Year
  Sex: Female
  Weight: 58.5 kg

DRUGS (2)
  1. KEPPRA [Suspect]
     Indication: COMPLEX PARTIAL SEIZURES
     Dosage: 500 MG /D PO
     Route: 048
     Dates: start: 20040901, end: 20050329
  2. KEPPRA [Suspect]
     Indication: COMPLEX PARTIAL SEIZURES
     Dosage: 1000 MG /D PO
     Route: 048
     Dates: start: 20050330

REACTIONS (2)
  - ALANINE AMINOTRANSFERASE INCREASED [None]
  - GRAND MAL CONVULSION [None]
